FAERS Safety Report 7609296-6 (Version None)
Quarter: 2011Q3

REPORT INFORMATION
  Report Type: 
  Country: None (occurrence: None)
  Receive Date: 20110714
  Receipt Date: 20110630
  Transmission Date: 20111222
  Serious: Yes (Hospitalization, Other)
  Sender: FDA-Public Use
  Company Number: PHHY2011FR56026

PATIENT
  Sex: Female
  Weight: 45 kg

DRUGS (6)
  1. APROVEL [Concomitant]
     Dosage: 75 MG, UNK
  2. TENORMIN [Concomitant]
     Dosage: 50 MG, QD
  3. ZOLEDRONOC ACID [Suspect]
     Indication: OSTEOPOROSIS
     Dosage: 5 MG, PER YEAR
     Route: 042
     Dates: start: 20100101
  4. ZOLEDRONOC ACID [Suspect]
     Dosage: 5 MG, PER YEAR
     Route: 042
     Dates: start: 20110517
  5. ZOCOR [Concomitant]
     Dosage: 20 MG, QD
  6. LANSOPRAZOLE [Concomitant]
     Dosage: 15 MG, UNK

REACTIONS (11)
  - LIPASE INCREASED [None]
  - PAIN [None]
  - PANCREATITIS ACUTE [None]
  - INFLUENZA LIKE ILLNESS [None]
  - VOMITING [None]
  - C-REACTIVE PROTEIN INCREASED [None]
  - ABDOMINAL PAIN UPPER [None]
  - RENAL CYST [None]
  - ASTHENIA [None]
  - HYPONATRAEMIA [None]
  - NEUTROPHIL COUNT INCREASED [None]
